FAERS Safety Report 13235065 (Version 1)
Quarter: 2017Q1

REPORT INFORMATION
  Report Type: Spontaneous
  Country: AT (occurrence: AT)
  Receive Date: 20170215
  Receipt Date: 20170215
  Transmission Date: 20170428
  Serious: Yes (Hospitalization, Other)
  Sender: FDA-Public Use
  Company Number: AT-009507513-1702AUT004321

PATIENT
  Age: 76 Year
  Sex: Female

DRUGS (3)
  1. KEYTRUDA [Suspect]
     Active Substance: PEMBROLIZUMAB
     Indication: SQUAMOUS CELL CARCINOMA
     Dosage: 2 MG/KG BODY WEIGHT IN 3 WEEKS INTERVALS
     Dates: start: 20161201
  2. KEYTRUDA [Suspect]
     Active Substance: PEMBROLIZUMAB
     Dosage: 2 MG/KG BODY WEIGHT IN 3 WEEKS INTERVALS
     Dates: start: 20161221
  3. KEYTRUDA [Suspect]
     Active Substance: PEMBROLIZUMAB
     Dosage: 2 MG/KG BODY WEIGHT IN 3 WEEKS INTERVALS
     Dates: start: 20170130

REACTIONS (4)
  - Hypercalcaemia [Recovered/Resolved]
  - Hot flush [Recovered/Resolved]
  - Product use issue [Unknown]
  - Adrenal insufficiency [Recovered/Resolved]

NARRATIVE: CASE EVENT DATE: 20161201
